FAERS Safety Report 9909783 (Version 2)
Quarter: 2014Q1

REPORT INFORMATION
  Report Type: Spontaneous
  Country: US (occurrence: US)
  Receive Date: 20140219
  Receipt Date: 20140319
  Transmission Date: 20141002
  Serious: No
  Sender: FDA-Public Use
  Company Number: US-PFIZER INC-2014040617

PATIENT
  Age: 51 Year
  Sex: Male

DRUGS (13)
  1. DILANTIN [Suspect]
     Indication: EPILEPSY
     Dosage: UNK
  2. DILANTIN [Suspect]
     Dosage: 100 MG, 3X/DAY
     Route: 048
     Dates: start: 20130322
  3. DILANTIN [Suspect]
     Dosage: 400 MG, DAILY
     Route: 048
     Dates: start: 20130503
  4. DILANTIN [Suspect]
     Dosage: 500 MG, DAILY
     Route: 048
     Dates: start: 20130604
  5. LAMICTAL [Suspect]
     Dosage: UNK
  6. LAMICTAL [Suspect]
     Dosage: UNK (1 AND HALF PILLS)
  7. LAMICTAL [Suspect]
     Dosage: 100 MG, 3X/DAY
  8. LAMICTAL [Suspect]
     Dosage: 150 MG, 2X/DAY
     Dates: start: 20131209
  9. NEURONTIN [Concomitant]
     Dosage: 300 MG, 3X/DAY
  10. ELAVIL [Concomitant]
     Dosage: 25 MG, 1X/DAY
  11. PROPRANOLOL [Concomitant]
     Dosage: 80 MG, 2X/DAY
  12. PRAVASTATIN [Concomitant]
     Dosage: 20 MG, UNK
  13. PRAVACOL [Concomitant]
     Dosage: 15 MG, UNK

REACTIONS (2)
  - Balance disorder [Recovering/Resolving]
  - Ataxia [Recovering/Resolving]
